FAERS Safety Report 6194392-3 (Version None)
Quarter: 2009Q2

REPORT INFORMATION
  Report Type: 
  Country: None (occurrence: None)
  Receive Date: 20090515
  Receipt Date: 20090505
  Transmission Date: 20091009
  Serious: Yes (Hospitalization)
  Sender: FDA-Public Use
  Company Number: 1000006225

PATIENT
  Age: 76 Year
  Sex: Male

DRUGS (4)
  1. ESCITALOPRAM [Suspect]
     Indication: AFFECTIVE DISORDER
     Dosage: 10 MG ORAL
     Route: 048
     Dates: start: 20080819, end: 20090418
  2. TAHOE [Concomitant]
  3. PLAVIX [Concomitant]
  4. PARIET [Concomitant]

REACTIONS (3)
  - ERYTHEMA [None]
  - PRURITUS GENERALISED [None]
  - RASH PAPULAR [None]
